FAERS Safety Report 5911025-9 (Version None)
Quarter: 2008Q4

REPORT INFORMATION
  Report Type: 
  Country: None (occurrence: None)
  Receive Date: 20081007
  Receipt Date: 20080925
  Transmission Date: 20090506
  Serious: Yes (Life-Threatening, Hospitalization)
  Sender: FDA-Public Use
  Company Number: DK-SANOFI-SYNTHELABO-A01200812073

PATIENT
  Age: 78 Year
  Sex: Female

DRUGS (3)
  1. NIMADORM / ZOLPIDEM [Suspect]
     Indication: SLEEP DISORDER
     Dosage: 10 MG
     Route: 048
  2. MIDAZOLAM HCL [Suspect]
     Indication: SEDATIVE THERAPY
     Route: 030
     Dates: start: 20080728, end: 20080728
  3. MIDAZOLAM HCL [Suspect]
     Route: 030
     Dates: start: 20080806, end: 20080806

REACTIONS (1)
  - LARYNGOSPASM [None]
